FAERS Safety Report 6711677-X (Version None)
Quarter: 2010Q2

REPORT INFORMATION
  Report Type: 
  Country: None (occurrence: None)
  Receive Date: 20100505
  Receipt Date: 20100428
  Transmission Date: 20101027
  Serious: Yes (Hospitalization)
  Sender: FDA-Public Use
  Company Number: FR-ROCHE-687147

PATIENT
  Sex: Male
  Weight: 73 kg

DRUGS (1)
  1. PEGINTERFERON ALFA-2A [Suspect]
     Indication: HEPATIC FAILURE
     Dosage: REPORTED FREQUENCY: 1, LAST DOSE PRIOR TO SAE: 09 FEB 2010
     Route: 058
     Dates: start: 20100209

REACTIONS (1)
  - ANAL FISSURE [None]
